FAERS Safety Report 4470130-7 (Version None)
Quarter: 2004Q3

REPORT INFORMATION
  Report Type: 
  Country: None (occurrence: None)
  Receive Date: 20040910
  Receipt Date: 20040719
  Transmission Date: 20050211
  Serious: No
  Sender: FDA-Public Use
  Company Number: 2004224521US

PATIENT
  Age: 81 Year
  Sex: Female
  Weight: 70.3 kg

DRUGS (4)
  1. BEXTRA [Suspect]
     Indication: ARTHRITIS
     Dosage: QD, ORAL
     Route: 048
     Dates: start: 20040701, end: 20040701
  2. MOTRIN [Concomitant]
  3. MULTIVITAMIN [Concomitant]
  4. CORTISONE (CORTISONE) [Concomitant]

REACTIONS (15)
  - ASTHENIA [None]
  - BALANCE DISORDER [None]
  - CHEST PAIN [None]
  - DIZZINESS [None]
  - DRY MOUTH [None]
  - DYSPNOEA [None]
  - FATIGUE [None]
  - FEELING ABNORMAL [None]
  - HYPERSENSITIVITY [None]
  - HYPOAESTHESIA ORAL [None]
  - ORAL PAIN [None]
  - STOMATITIS [None]
  - SWELLING FACE [None]
  - SWOLLEN TONGUE [None]
  - VERTIGO [None]
